FAERS Safety Report 23779324 (Version 1)
Quarter: 2024Q2

REPORT INFORMATION
  Report Type: Spontaneous
  Country: AU (occurrence: AU)
  Receive Date: 20240424
  Receipt Date: 20240424
  Transmission Date: 20240715
  Serious: Yes (Hospitalization, Other)
  Sender: FDA-Public Use
  Company Number: AU-ABBVIE-5727272

PATIENT
  Age: 28 Year

DRUGS (2)
  1. VENETOCLAX [Suspect]
     Active Substance: VENETOCLAX
     Indication: Product used for unknown indication
     Route: 048
  2. GILTERITINIB [Suspect]
     Active Substance: GILTERITINIB
     Indication: Acute myeloid leukaemia
     Route: 065
     Dates: end: 202304

REACTIONS (15)
  - Wolff-Parkinson-White syndrome [Unknown]
  - Thrombocytopenia [Unknown]
  - Acute myeloid leukaemia recurrent [Unknown]
  - Musculoskeletal chest pain [Unknown]
  - Graft versus host disease [Unknown]
  - Salmonella bacteraemia [Unknown]
  - Sinusitis [Unknown]
  - Product use issue [Unknown]
  - Alpha haemolytic streptococcal infection [Unknown]
  - Liver function test increased [Unknown]
  - Cytopenia [Unknown]
  - Alpha haemolytic streptococcal infection [Unknown]
  - Lymphadenopathy [Unknown]
  - Rash [Unknown]
  - COVID-19 [Unknown]

NARRATIVE: CASE EVENT DATE: 20220201
